FAERS Safety Report 9214495 (Version 1)
Quarter: 2013Q2

REPORT INFORMATION
  Report Type: Spontaneous
  Country: US (occurrence: US)
  Receive Date: 20130405
  Receipt Date: 20130405
  Transmission Date: 20140414
  Serious: No
  Sender: FDA-Public Use
  Company Number: US-JNJFOC-20130304203

PATIENT
  Age: 39 Year
  Sex: Male
  Weight: 90.72 kg

DRUGS (1)
  1. INVEGA SUSTENNA [Suspect]
     Indication: SCHIZOPHRENIA, PARANOID TYPE
     Route: 030
     Dates: start: 201212

REACTIONS (2)
  - Injection site nodule [Recovering/Resolving]
  - Product quality issue [Unknown]
